FAERS Safety Report 9415604 (Version 1)
Quarter: 2013Q3

REPORT INFORMATION
  Report Type: Report from Study
  Country: US (occurrence: US)
  Receive Date: 20130723
  Receipt Date: 20130723
  Transmission Date: 20140515
  Serious: Yes (Other)
  Sender: FDA-Public Use
  Company Number: US-US-EMD SERONO, INC.-7224556

PATIENT
  Age: 59 Year
  Sex: Female

DRUGS (1)
  1. REBIF [Suspect]
     Indication: MULTIPLE SCLEROSIS
     Route: 058
     Dates: start: 20050709

REACTIONS (4)
  - Intraductal proliferative breast lesion [Recovering/Resolving]
  - Neutralising antibodies [Unknown]
  - Contusion [Unknown]
  - Multiple sclerosis [Unknown]
